FAERS Safety Report 6505837-0 (Version None)
Quarter: 2009Q4

REPORT INFORMATION
  Report Type: 
  Country: None (occurrence: None)
  Receive Date: 20091218
  Receipt Date: 20091214
  Transmission Date: 20100525
  Serious: Yes (Hospitalization)
  Sender: FDA-Public Use
  Company Number: FR-BRISTOL-MYERS SQUIBB COMPANY-14894661

PATIENT
  Age: 50 Year
  Sex: Male

DRUGS (3)
  1. REYATAZ [Suspect]
     Indication: HIV INFECTION
     Route: 048
     Dates: start: 20050101, end: 20091101
  2. COMBIVIR [Suspect]
     Route: 048
     Dates: start: 20010101
  3. NORVIR [Suspect]
     Route: 048

REACTIONS (2)
  - CALCULUS URINARY [None]
  - RENAL COLIC [None]
